FAERS Safety Report 4430658-2 (Version None)
Quarter: 2004Q3

REPORT INFORMATION
  Report Type: 
  Country: None (occurrence: None)
  Receive Date: 20040818
  Receipt Date: 20040809
  Transmission Date: 20050211
  Serious: Yes (Life-Threatening, Hospitalization)
  Sender: FDA-Public Use
  Company Number: 2004PK01363

PATIENT
  Age: 52 Year
  Sex: Female
  Weight: 75 kg

DRUGS (3)
  1. NOLVADEX [Suspect]
     Indication: BREAST CANCER
     Dosage: 20 MG DAILY PO
     Route: 048
     Dates: start: 20030709, end: 20031113
  2. ZOLADEX [Suspect]
     Indication: BREAST CANCER
     Dosage: 3.6 MG Q4WK SQ
     Route: 058
     Dates: start: 20030709, end: 20031113
  3. ZOLEDRONAT [Suspect]
     Indication: BREAST CANCER
     Dates: start: 20030415

REACTIONS (4)
  - ENDOMETRIAL CANCER [None]
  - ENDOMETRIAL HYPERPLASIA [None]
  - METRORRHAGIA [None]
  - VAGINAL HAEMORRHAGE [None]
